FAERS Safety Report 15824409 (Version 2)
Quarter: 2019Q1

REPORT INFORMATION
  Report Type: Other
  Country: GB (occurrence: GB)
  Receive Date: 20190115
  Receipt Date: 20190217
  Transmission Date: 20190417
  Serious: Yes (Hospitalization)
  Sender: FDA-Public Use
  Company Number: GB-CELLTRION INC.-2019GB017579

PATIENT

DRUGS (2)
  1. RITUXIMAB (UNKNOWN) [Suspect]
     Active Substance: RITUXIMAB
     Indication: RHEUMATOID ARTHRITIS
     Dosage: UNK
     Route: 042
     Dates: start: 20150807, end: 20170912
  2. METHOTREXATE. [Concomitant]
     Active Substance: METHOTREXATE
     Indication: RHEUMATOID ARTHRITIS

REACTIONS (6)
  - Packed red blood cell transfusion [Unknown]
  - Peripheral swelling [Unknown]
  - Femoral neck fracture [Unknown]
  - Fall [Unknown]
  - Humerus fracture [Unknown]
  - Tachycardia [Unknown]

NARRATIVE: CASE EVENT DATE: 20180427
